FAERS Safety Report 5284378-5 (Version None)
Quarter: 2007Q1

REPORT INFORMATION
  Report Type: 
  Country: None (occurrence: None)
  Receive Date: 20070330
  Receipt Date: 20070330
  Transmission Date: 20070707
  Serious: Yes (Other)
  Sender: FDA-Public Use
  Company Number: None

PATIENT
  Sex: Female
  Weight: 58.0604 kg

DRUGS (4)
  1. ULTRAM [Suspect]
     Indication: CREST SYNDROME
     Dosage: 50 MG  EVERY 6 HOURS  047
     Dates: start: 20040101
  2. ULTRAM [Suspect]
     Indication: RAYNAUD'S PHENOMENON
     Dosage: 50 MG  EVERY 6 HOURS  047
     Dates: start: 20040101
  3. PLETAL [Suspect]
     Dosage: 100 MG.  BID  047
     Dates: start: 20040101
  4. PERSANTINE-50 [Suspect]
     Dosage: 20 MG. TID  047

REACTIONS (2)
  - DRUG EFFECT DECREASED [None]
  - THERAPEUTIC RESPONSE UNEXPECTED WITH DRUG SUBSTITUTION [None]
